FAERS Safety Report 9421842 (Version 2)
Quarter: 2013Q3

REPORT INFORMATION
  Report Type: Report from Study
  Country: AR (occurrence: AR)
  Receive Date: 20130726
  Receipt Date: 20130812
  Transmission Date: 20140515
  Serious: Yes (Hospitalization, Other)
  Sender: FDA-Public Use
  Company Number: PHHY2013AR079492

PATIENT
  Age: 68 Year
  Sex: Female

DRUGS (1)
  1. DIOVAN D [Suspect]
     Indication: HYPERTENSION
     Dosage: 1 DF (VALS 160/ HYDR 12.5), DAILY
     Route: 048

REACTIONS (4)
  - Tibia fracture [Recovering/Resolving]
  - Movement disorder [Recovering/Resolving]
  - Road traffic accident [Recovering/Resolving]
  - Blood pressure increased [Recovering/Resolving]
